FAERS Safety Report 22134592 (Version 1)
Quarter: 2023Q1

REPORT INFORMATION
  Report Type: Spontaneous
  Country: US (occurrence: US)
  Receive Date: 20230324
  Receipt Date: 20230324
  Transmission Date: 20230417
  Serious: No
  Sender: FDA-Public Use
  Company Number: US-BAYER-2023A024127

PATIENT
  Age: 85 Year
  Sex: Female

DRUGS (6)
  1. CLARITIN [Suspect]
     Active Substance: LORATADINE
     Indication: Hypersensitivity
     Dosage: UNK UNK, QID
     Route: 048
  2. CLARITIN [Suspect]
     Active Substance: LORATADINE
     Indication: Nasopharyngitis
  3. CLARITIN [Suspect]
     Active Substance: LORATADINE
     Indication: Sinus operation
  4. CLARITIN [Suspect]
     Active Substance: LORATADINE
     Indication: Rhinorrhoea
  5. CLARITIN REDITABS [Suspect]
     Active Substance: LORATADINE
     Indication: Hypersensitivity
     Dosage: 4 DF, QD
  6. CLARITIN REDITABS [Suspect]
     Active Substance: LORATADINE
     Indication: Nasopharyngitis

REACTIONS (3)
  - Drug ineffective [Unknown]
  - Product use in unapproved indication [None]
  - Product prescribing issue [Unknown]
